FAERS Safety Report 8840520 (Version 1)
Quarter: 2012Q4

REPORT INFORMATION
  Report Type: 
  Country: AU (occurrence: AU)
  Receive Date: 20121015
  Receipt Date: 20121015
  Transmission Date: 20130627
  Serious: Yes (Hospitalization, Other)
  Sender: FDA-Public Use
  Company Number: AU-ROCHE-1138235

PATIENT
  Sex: Female

DRUGS (6)
  1. MABTHERA [Suspect]
     Indication: IDIOPATHIC THROMBOCYTOPENIC PURPURA
     Route: 042
  2. GAMMAGLOBULIN [Concomitant]
     Route: 042
  3. STEROIDS (UNK INGREDIENTS) [Concomitant]
  4. VINCRISTINE [Concomitant]
  5. AZATHIOPRINE [Concomitant]
     Route: 065
  6. DEXAMETHASONE [Concomitant]

REACTIONS (4)
  - Thrombocytopenia [Unknown]
  - Diverticular perforation [Unknown]
  - Abscess [Unknown]
  - Mucosal haemorrhage [Unknown]
